FAERS Safety Report 8179316 (Version 9)
Quarter: 2013Q4

REPORT INFORMATION
  Report Type: Spontaneous
  Country: JP (occurrence: JP)
  Receive Date: 20111013
  Receipt Date: 20131001
  Transmission Date: 20140711
  Serious: Yes (Death, Life-Threatening, Hospitalization, Other)
  Sender: FDA-Public Use
  Company Number: PHHY2011JP88167

PATIENT
  Age: 43 Year
  Sex: Male

DRUGS (33)
  1. TASIGNA [Suspect]
     Indication: CHRONIC MYELOID LEUKAEMIA
     Dosage: 150 MG, QD
     Route: 048
     Dates: start: 20111003, end: 20111003
  2. TASIGNA [Suspect]
     Dosage: 300 MG, UNK
     Route: 048
  3. PURSENNID [Concomitant]
     Dosage: UNK UKN, UNK
     Dates: start: 20110928
  4. SILECE [Concomitant]
     Dosage: 2 MG, DAILY
     Route: 048
     Dates: start: 20110927, end: 20111002
  5. HALCION [Concomitant]
     Dosage: 0.25 MG, DAILY
     Route: 048
     Dates: start: 20110927, end: 20111003
  6. MYSLEE [Concomitant]
     Dosage: 5 MG, DAILY
     Route: 048
     Dates: start: 20110927, end: 20111003
  7. MEILAX [Concomitant]
     Dosage: 1 MG, DAILY
     Route: 048
     Dates: start: 20110927
  8. MEILAX [Concomitant]
     Dosage: 1 MG, DAILY
  9. TOFRANIL [Concomitant]
     Dosage: 30 MG, DAILY
     Route: 048
     Dates: start: 20110927
  10. TOFRANIL [Concomitant]
     Dosage: 10 MG, DAILY
     Route: 048
  11. ZYLORIC [Concomitant]
     Dosage: 200 MG, DAILY
     Route: 048
     Dates: start: 20110927, end: 20111003
  12. HYDREA [Concomitant]
     Dosage: 1000 MG, DAILY
     Route: 048
     Dates: start: 20110928, end: 20111001
  13. HYDREA [Concomitant]
     Dosage: 1500 MG, DAILY
     Dates: start: 20111002, end: 20111003
  14. DEXALTIN [Concomitant]
     Dosage: UNK UKN, UNK
  15. LAXOBERON [Concomitant]
     Dosage: UNK UKN, UNK
     Dates: start: 20110929
  16. MAGNESIUM OXIDE [Concomitant]
     Dosage: 1 G, DAILY
     Route: 048
     Dates: start: 20111001
  17. MUCODYNE [Concomitant]
     Dosage: 1000 MG, DAILY
     Route: 048
  18. MUCODYNE [Concomitant]
     Dosage: 1500 MG, DAILY
     Route: 048
     Dates: start: 20111001
  19. LENDORMIN [Concomitant]
     Dosage: UNK UKN, UNK
     Route: 048
     Dates: start: 20111001
  20. BAKTAR [Concomitant]
     Dosage: 2 DF, DAILY
     Route: 048
     Dates: start: 20111002, end: 20111003
  21. GASPORT [Concomitant]
     Dosage: 20 MG, DAILY
     Dates: start: 20110927, end: 20111003
  22. SODIUM CHLORIDE SOLUTION [Concomitant]
     Dosage: 500 MG, DAILY
     Dates: start: 20110927
  23. NOVO HEPARIN [Concomitant]
     Dosage: 10000 IU, DAILY
     Dates: start: 20110927
  24. PACIL [Concomitant]
     Dosage: 1000 MG, DAILY
     Dates: start: 20111002
  25. SEISHOKU [Concomitant]
     Dosage: 20 ML, DAILY
     Dates: start: 20111002
  26. SEISHOKU [Concomitant]
     Dosage: 10 ML, DAILY
  27. SEISHOKU [Concomitant]
     Dosage: 100 ML, DAILY
     Dates: start: 20111002, end: 20111004
  28. FUNGUARD [Concomitant]
     Dosage: 150 MG, UNK
     Dates: start: 20111002, end: 20111004
  29. PREDONINE [Concomitant]
     Dosage: 60 MG, DAILY
     Dates: start: 20111002, end: 20111003
  30. GLUCOSE [Concomitant]
     Dosage: 500 ML
     Dates: start: 20111004
  31. GLUCOSE [Concomitant]
     Dosage: 1000 ML
     Dates: end: 20111005
  32. GLYCYRRHIZIC ACID, AMMONIUM SALT [Concomitant]
     Dosage: 60 ML
     Dates: start: 20111005, end: 20111005
  33. HYDROXYUREA [Concomitant]

REACTIONS (21)
  - Multi-organ failure [Fatal]
  - Urine output decreased [Fatal]
  - Neoplasm progression [Fatal]
  - Malignant neoplasm progression [Fatal]
  - Hepatitis fulminant [Fatal]
  - Nausea [Fatal]
  - Decreased appetite [Fatal]
  - Abdominal pain upper [Fatal]
  - Jaundice [Fatal]
  - Disseminated intravascular coagulation [Fatal]
  - Coagulopathy [Fatal]
  - Hepatic failure [Fatal]
  - Hepatic necrosis [Fatal]
  - Tumour lysis syndrome [Fatal]
  - Hyperkalaemia [Fatal]
  - Hyperphosphataemia [Fatal]
  - Coma [Recovering/Resolving]
  - Metabolic acidosis [Unknown]
  - Hyperglycaemia [Recovering/Resolving]
  - Subcutaneous haematoma [Unknown]
  - Arterial haemorrhage [Unknown]
